FAERS Safety Report 5374958-0 (Version None)
Quarter: 2007Q2

REPORT INFORMATION
  Report Type: 
  Country: None (occurrence: None)
  Receive Date: 20070627
  Receipt Date: 20070627
  Transmission Date: 20071010
  Serious: Yes (Hospitalization)
  Sender: FDA-Public Use
  Company Number: None

PATIENT
  Age: 69 Year
  Sex: Male

DRUGS (1)
  1. AMPICILLIN AND SULBACTAM [Suspect]
     Indication: SEPSIS
     Dosage: 3 GM OTHER IV
     Route: 042
     Dates: start: 20061227, end: 20070103

REACTIONS (1)
  - CLOSTRIDIUM DIFFICILE COLITIS [None]
